FAERS Safety Report 6520423-4 (Version None)
Quarter: 2009Q4

REPORT INFORMATION
  Report Type: 
  Country: None (occurrence: None)
  Receive Date: 20091229
  Receipt Date: 20091218
  Transmission Date: 20100525
  Serious: Yes (Other)
  Sender: FDA-Public Use
  Company Number: JP-PFIZER INC-2009312872

PATIENT

DRUGS (1)
  1. ATARAX [Suspect]
     Indication: ENDOSCOPY
     Dosage: 12.5 MG DAILY
     Route: 042

REACTIONS (1)
  - LOSS OF CONSCIOUSNESS [None]
